FAERS Safety Report 6478595-6 (Version None)
Quarter: 2009Q4

REPORT INFORMATION
  Report Type: 
  Country: None (occurrence: None)
  Receive Date: 20091207
  Receipt Date: 20091028
  Transmission Date: 20100525
  Serious: Yes (Other)
  Sender: FDA-Public Use
  Company Number: US-SANOFI-AVENTIS-2009SA000182

PATIENT
  Sex: Male

DRUGS (2)
  1. INSULIN GLARGINE [Suspect]
     Indication: TYPE 2 DIABETES MELLITUS
     Dosage: DOSE:20 UNIT(S)
     Route: 058
  2. OPTICLICK [Suspect]
     Indication: TYPE 2 DIABETES MELLITUS

REACTIONS (2)
  - DEMENTIA [None]
  - VASCULAR GRAFT [None]
